FAERS Safety Report 9161628 (Version 1)
Quarter: 2013Q1

REPORT INFORMATION
  Report Type: Spontaneous
  Country: MX (occurrence: MX)
  Receive Date: 20130313
  Receipt Date: 20130313
  Transmission Date: 20140127
  Serious: Yes (Death, Other)
  Sender: FDA-Public Use
  Company Number: PHHY2013MX023649

PATIENT
  Age: 86 Year
  Sex: Male

DRUGS (8)
  1. EXFORGE HCT [Suspect]
     Indication: HYPERTENSION
     Dosage: 1 DF (160 MG VALS + 5 MG AMLO + 12.5 MG HCT), DAILY
     Route: 048
     Dates: start: 201203, end: 20121220
  2. NORVASC [Concomitant]
     Indication: CARDIAC DISORDER
     Dosage: 1 UKN, UNK
  3. OGASTRO [Concomitant]
     Dosage: UNK UKN, UNK
  4. FOLIC ACID [Concomitant]
     Dosage: UNK UKN, UNK
  5. STUGERON FORTE [Concomitant]
     Dosage: UNK UKN, UNK
  6. INDURGAN [Concomitant]
     Dosage: UNK UKN, UNK
  7. ASPIRIN PROTECT [Concomitant]
     Dosage: UNK UKN, UNK
  8. SERTRALINE [Concomitant]
     Dosage: UNK UKN, UNK

REACTIONS (4)
  - Renal failure chronic [Fatal]
  - Pneumonia [Fatal]
  - Lung disorder [Fatal]
  - Dysphagia [Fatal]
